APPROVED DRUG PRODUCT: THEOPHYLLINE
Active Ingredient: THEOPHYLLINE
Strength: 80MG/15ML
Dosage Form/Route: ELIXIR;ORAL
Application: A087679 | Product #001
Applicant: CENCI POWDER PRODUCTS INC
Approved: Apr 15, 1982 | RLD: No | RS: No | Type: DISCN